FAERS Safety Report 20034630 (Version 1)
Quarter: 2021Q4

REPORT INFORMATION
  Report Type: Spontaneous
  Country: KR (occurrence: KR)
  Receive Date: 20211104
  Receipt Date: 20211104
  Transmission Date: 20220303
  Serious: Yes (Other)
  Sender: FDA-Public Use
  Company Number: KR-ORG100014127-2021001361

PATIENT
  Age: 5 Year
  Sex: Female
  Weight: 21.3 kg

DRUGS (3)
  1. MITOTANE [Suspect]
     Active Substance: MITOTANE
     Dosage: 1.25 G/M2/DAY, THEN 1.85 G/M2/DAY, 2.5 G/M2/DAY, 3 G/M2/DAY, 2.5 G/M2/DAY
     Route: 048
  2. HYDROCORTISONE [Concomitant]
     Active Substance: HYDROCORTISONE
  3. HYDROCORTISONE [Concomitant]
     Active Substance: HYDROCORTISONE

REACTIONS (7)
  - Precocious puberty [Not Recovered/Not Resolved]
  - Encephalopathy [Recovering/Resolving]
  - Hypothyroidism [Not Recovered/Not Resolved]
  - Adrenal insufficiency [Unknown]
  - Epigastric discomfort [Unknown]
  - Hypercholesterolaemia [Unknown]
  - Off label use [Recovered/Resolved]
